FAERS Safety Report 6131663-0 (Version None)
Quarter: 2009Q1

REPORT INFORMATION
  Report Type: 
  Country: None (occurrence: None)
  Receive Date: 20090325
  Receipt Date: 20090121
  Transmission Date: 20090719
  Serious: Yes (Other)
  Sender: FDA-Public Use
  Company Number: US-BRISTOL-MYERS SQUIBB COMPANY-14478358

PATIENT
  Sex: Male

DRUGS (2)
  1. ERBITUX [Suspect]
     Indication: COLORECTAL CANCER
     Dosage: RESTARTED WITH DOSE- 100MG/M2 AND LATER 200 MG/M2 AND RECENT DOSE-250MG/M2 WKLY
  2. BENADRYL [Concomitant]
     Indication: PREMEDICATION

REACTIONS (3)
  - BLOOD PRESSURE INCREASED [None]
  - PYREXIA [None]
  - TREMOR [None]
